FAERS Safety Report 13048737 (Version 2)
Quarter: 2017Q1

REPORT INFORMATION
  Report Type: Spontaneous
  Country: US (occurrence: US)
  Receive Date: 20161221
  Receipt Date: 20170103
  Transmission Date: 20170428
  Serious: Yes (Life-Threatening)
  Sender: FDA-Public Use
  Company Number: US-DRREDDYS-USA/USA/16/0085734

PATIENT
  Age: 66 Year
  Sex: Male

DRUGS (2)
  1. ZOLEDRONIC ACID. [Suspect]
     Active Substance: ZOLEDRONIC ACID
     Indication: OSTEOPENIA
     Route: 065
  2. IMMUNE GLOBULIN NOS [Concomitant]
     Active Substance: IMMUNE GLOBULIN NOS
     Indication: HYPOGAMMAGLOBULINAEMIA
     Route: 042

REACTIONS (5)
  - Rash morbilliform [Recovered/Resolved]
  - Myalgia [Unknown]
  - Arthralgia [Unknown]
  - Swelling [Unknown]
  - Pyrexia [Unknown]
